FAERS Safety Report 5913981-1 (Version None)
Quarter: 2008Q4

REPORT INFORMATION
  Report Type: 
  Country: None (occurrence: None)
  Receive Date: 20081009
  Receipt Date: 20080930
  Transmission Date: 20090506
  Serious: Yes (Other)
  Sender: FDA-Public Use
  Company Number: FR-AVENTIS-200813470FR

PATIENT
  Age: 83 Year
  Sex: Male

DRUGS (9)
  1. CLAFORAN [Suspect]
     Route: 042
     Dates: start: 20080818, end: 20080826
  2. CLAFORAN [Suspect]
     Indication: ERYTHEMA MULTIFORME
     Route: 042
     Dates: start: 20080818, end: 20080826
  3. LOVENOX [Suspect]
     Route: 058
     Dates: start: 20080816, end: 20080828
  4. KARDEGIC                           /00002703/ [Concomitant]
  5. LIPANOR [Concomitant]
  6. XATRAL                             /00975301/ [Concomitant]
  7. ERYTHROMYCIN [Concomitant]
     Dates: start: 20080816, end: 20080818
  8. LASIX [Concomitant]
     Route: 048
  9. JOSACIN                            /00273601/ [Concomitant]
     Dates: start: 20080822

REACTIONS (2)
  - CONDITION AGGRAVATED [None]
  - EOSINOPHILIA [None]
